FAERS Safety Report 14961193 (Version 2)
Quarter: 2018Q2

REPORT INFORMATION
  Report Type: Spontaneous
  Country: AT (occurrence: AT)
  Receive Date: 20180601
  Receipt Date: 20180612
  Transmission Date: 20180711
  Serious: Yes (Other)
  Sender: FDA-Public Use
  Company Number: AT-ABBVIE-18K-009-2367994-00

PATIENT
  Sex: Female
  Weight: 54 kg

DRUGS (11)
  1. HUMIRA [Suspect]
     Active Substance: ADALIMUMAB
     Indication: CROHN^S DISEASE
     Route: 058
     Dates: start: 20111101, end: 20140501
  2. PENTASA [Concomitant]
     Active Substance: MESALAMINE
     Indication: PRODUCT USED FOR UNKNOWN INDICATION
  3. HUMIRA [Suspect]
     Active Substance: ADALIMUMAB
     Route: 058
     Dates: start: 201412
  4. BUDOSAN [Concomitant]
     Active Substance: BUDESONIDE
     Indication: PRODUCT USED FOR UNKNOWN INDICATION
     Dates: end: 2014
  5. BUDOSAN [Concomitant]
     Active Substance: BUDESONIDE
     Dates: start: 201601
  6. BUDOSAN [Concomitant]
     Active Substance: BUDESONIDE
     Dates: start: 2014
  7. IMUREK [Concomitant]
     Active Substance: AZATHIOPRINE
     Indication: PRODUCT USED FOR UNKNOWN INDICATION
  8. AZATHIOPRIN [Suspect]
     Active Substance: AZATHIOPRINE
     Indication: PRODUCT USED FOR UNKNOWN INDICATION
     Dosage: INTERMITTENTLY IN COMBINATION WITH HUMIRA: UP TO A DOSAGE OF 200MG
     Route: 065
     Dates: start: 2005, end: 2018
  9. IRON [Concomitant]
     Active Substance: IRON
     Indication: PRODUCT USED FOR UNKNOWN INDICATION
     Route: 017
  10. HUMIRA [Suspect]
     Active Substance: ADALIMUMAB
     Route: 058
     Dates: start: 2014, end: 201412
  11. FERACCRU [Concomitant]
     Indication: PRODUCT USED FOR UNKNOWN INDICATION
     Dosage: 2 TIMES DAILY

REACTIONS (8)
  - Fatigue [Unknown]
  - Pyrexia [Recovered/Resolved]
  - Lung infiltration [Unknown]
  - Lung adenocarcinoma [Recovered/Resolved]
  - Diarrhoea [Unknown]
  - Anastomotic ulcer [Unknown]
  - Weight decreased [Recovered/Resolved]
  - Immunosuppression [Unknown]

NARRATIVE: CASE EVENT DATE: 2014
